FAERS Safety Report 4900111-8 (Version None)
Quarter: 2006Q1

REPORT INFORMATION
  Report Type: 
  Country: None (occurrence: None)
  Receive Date: 20060201
  Receipt Date: 20060117
  Transmission Date: 20060701
  Serious: No
  Sender: FDA-Public Use
  Company Number: US200512001379

PATIENT
  Age: 80 Year
  Sex: Female
  Weight: 56.6996 kg

DRUGS (3)
  1. FORTEO [Suspect]
     Indication: OSTEOPOROSIS
     Dosage: 20 UG DAILY (1/D)
     Dates: start: 20040504
  2. FORTEO PEN (FORTEO PEN) [Concomitant]
  3. MEMANTINE HYDROCHLORIDE (MEMANTINE HYDROCHLORIDE) [Concomitant]

REACTIONS (14)
  - ACCIDENT [None]
  - ASTHENIA [None]
  - BLOOD ALKALINE PHOSPHATASE INCREASED [None]
  - CATARACT [None]
  - CHONDROCALCINOSIS [None]
  - DEMENTIA [None]
  - FATIGUE [None]
  - HYPERTENSION [None]
  - LORDOSIS [None]
  - MUSCLE STRAIN [None]
  - NEPHROLITHIASIS [None]
  - SPINAL OSTEOARTHRITIS [None]
  - URINARY SYSTEM X-RAY ABNORMAL [None]
  - X-RAY ABNORMAL [None]
